FAERS Safety Report 8848891 (Version 3)
Quarter: 2012Q4

REPORT INFORMATION
  Report Type: 
  Country: US (occurrence: US)
  Receive Date: 20121018
  Receipt Date: 20121114
  Transmission Date: 20130627
  Serious: Yes (Death)
  Sender: FDA-Public Use
  Company Number: PHEH2012US020421

PATIENT
  Age: 87 Year
  Sex: Male
  Weight: 64.22 kg

DRUGS (6)
  1. GLEEVEC [Suspect]
     Indication: NEOPLASM MALIGNANT
     Dosage: 400 mg, daily
     Route: 048
     Dates: start: 20110329
  2. GLEEVEC [Suspect]
     Indication: GASTROINTESTINAL STROMAL TUMOUR
     Dosage: 400 mg, QD
     Route: 048
     Dates: start: 20110324
  3. COLACE [Concomitant]
     Dosage: 100 mg, UNK
     Route: 048
  4. PHENOBARBITAL [Concomitant]
     Dosage: 32.4 mg, UNK
     Route: 048
  5. PHENYTOIN [Concomitant]
     Dosage: 100 mg, UNK
     Route: 048
  6. QUINAPRIL [Concomitant]
     Dosage: 20 mg, UNK
     Route: 048

REACTIONS (3)
  - Death [Fatal]
  - Haematocrit decreased [Unknown]
  - Haemoglobin decreased [Unknown]
